FAERS Safety Report 19788939 (Version 1)
Quarter: 2021Q3

REPORT INFORMATION
  Report Type: Spontaneous
  Country: US (occurrence: US)
  Receive Date: 20210904
  Receipt Date: 20210904
  Transmission Date: 20211014
  Serious: No
  Sender: FDA-Public Use
  Company Number: US-CELGENEUS-USA-20210808830

PATIENT
  Sex: Female

DRUGS (9)
  1. THALOMID [Suspect]
     Active Substance: THALIDOMIDE
     Dosage: 100 MG
     Route: 048
     Dates: start: 201209
  2. THALOMID [Suspect]
     Active Substance: THALIDOMIDE
     Dosage: 50 MG
     Route: 048
     Dates: start: 201604
  3. THALOMID [Suspect]
     Active Substance: THALIDOMIDE
     Indication: SYSTEMIC LUPUS ERYTHEMATOSUS
     Dosage: 50 MG
     Route: 048
     Dates: start: 201008
  4. THALOMID [Suspect]
     Active Substance: THALIDOMIDE
     Dosage: 100 MG
     Route: 048
     Dates: start: 201102
  5. THALOMID [Suspect]
     Active Substance: THALIDOMIDE
     Dosage: 100 MG
     Route: 048
     Dates: start: 201312
  6. THALOMID [Suspect]
     Active Substance: THALIDOMIDE
     Dosage: 100 MG
     Route: 048
     Dates: start: 201303
  7. THALOMID [Suspect]
     Active Substance: THALIDOMIDE
     Dosage: 50 MG
     Route: 048
     Dates: start: 201106
  8. THALOMID [Suspect]
     Active Substance: THALIDOMIDE
     Dosage: 50 MG
     Route: 048
     Dates: start: 201304
  9. THALOMID [Suspect]
     Active Substance: THALIDOMIDE
     Dosage: 50 MG
     Route: 048
     Dates: start: 201308

REACTIONS (1)
  - Rash [Unknown]
